FAERS Safety Report 11821553 (Version 2)
Quarter: 2017Q3

REPORT INFORMATION
  Report Type: Spontaneous
  Country: US (occurrence: US)
  Receive Date: 20151210
  Receipt Date: 20170725
  Transmission Date: 20171127
  Serious: Yes (Hospitalization)
  Sender: FDA-Public Use
  Company Number: US-JNJFOC-20141216095

PATIENT
  Age: 64 Year
  Sex: Male

DRUGS (4)
  1. IMBRUVICA [Suspect]
     Active Substance: IBRUTINIB
     Indication: CHRONIC LYMPHOCYTIC LEUKAEMIA
     Dates: start: 201406
  2. ALLOPURINOL. [Concomitant]
     Active Substance: ALLOPURINOL
  3. LEXAPRO [Concomitant]
     Active Substance: ESCITALOPRAM OXALATE
  4. ZOFRAN [Concomitant]
     Active Substance: ONDANSETRON HYDROCHLORIDE
     Dosage: 4MG, Q6H PRN
     Route: 048

REACTIONS (6)
  - Lymphangitis [Unknown]
  - Leukocytosis [Unknown]
  - Cellulitis [Unknown]
  - Neuropathy peripheral [Not Recovered/Not Resolved]
  - Paronychia [Recovered/Resolved]
  - Sepsis [Recovered/Resolved]

NARRATIVE: CASE EVENT DATE: 2014
